FAERS Safety Report 11630214 (Version 1)
Quarter: 2015Q4

REPORT INFORMATION
  Report Type: Spontaneous
  Country: US (occurrence: US)
  Receive Date: 20151014
  Receipt Date: 20151014
  Transmission Date: 20160304
  Serious: No
  Sender: FDA-Public Use
  Company Number: US-INDIVIOR-RB-080641-2015

PATIENT
  Age: 23 Year
  Sex: Male
  Weight: 181.41 kg

DRUGS (6)
  1. SUBOXONE [Suspect]
     Active Substance: BUPRENORPHINE HYDROCHLORIDE\NALOXONE HYDROCHLORIDE
     Indication: DRUG DEPENDENCE
     Dosage: 8 MG, BID, VERY BRIEFLY
     Route: 060
     Dates: start: 2012, end: 2012
  2. NICOTINE. [Concomitant]
     Active Substance: NICOTINE
     Indication: NICOTINE DEPENDENCE
     Dosage: 2 PACKS PER DAY
     Route: 055
  3. SUBOXONE [Suspect]
     Active Substance: BUPRENORPHINE HYDROCHLORIDE\NALOXONE HYDROCHLORIDE
     Dosage: 2 FILMS OR MORE, DAILY
     Route: 042
     Dates: start: 2012, end: 201504
  4. SUBOXONE [Suspect]
     Active Substance: BUPRENORPHINE HYDROCHLORIDE\NALOXONE HYDROCHLORIDE
     Dosage: 8 MG, BID
     Route: 060
     Dates: start: 201504
  5. SUBOXONE [Suspect]
     Active Substance: BUPRENORPHINE HYDROCHLORIDE\NALOXONE HYDROCHLORIDE
     Indication: PRODUCT USED FOR UNKNOWN INDICATION
     Dosage: UNK
     Route: 065
  6. SUBUTEX [Suspect]
     Active Substance: BUPRENORPHINE HYDROCHLORIDE
     Indication: PRODUCT USED FOR UNKNOWN INDICATION
     Dosage: UNK
     Route: 065

REACTIONS (6)
  - Product preparation error [Recovered/Resolved]
  - Intentional product misuse [Not Recovered/Not Resolved]
  - Drug ineffective [Not Recovered/Not Resolved]
  - Oedema peripheral [Not Recovered/Not Resolved]
  - Lung disorder [Not Recovered/Not Resolved]
  - Intentional product use issue [Recovered/Resolved]

NARRATIVE: CASE EVENT DATE: 2012
